FAERS Safety Report 4281619-8 (Version None)
Quarter: 2004Q1

REPORT INFORMATION
  Report Type: 
  Country: None (occurrence: None)
  Receive Date: 20040105
  Receipt Date: 20030826
  Transmission Date: 20041129
  Serious: Yes (Hospitalization)
  Sender: FDA-Public Use
  Company Number: US011449

PATIENT
  Age: 53 Year
  Sex: Female

DRUGS (3)
  1. ACTIQ [Suspect]
     Indication: ARTHRALGIA
     Dosage: 600 UG TID BUCCAL
     Route: 002
     Dates: start: 20030201
  2. ACTIQ [Suspect]
     Indication: PAIN IN EXTREMITY
     Dosage: 600 UG TID BUCCAL
     Route: 002
     Dates: start: 20030201
  3. OXYCONTIN [Concomitant]

REACTIONS (7)
  - APPLICATION SITE PAIN [None]
  - APPLICATION SITE SWELLING [None]
  - DRUG EFFECT INCREASED [None]
  - DYSPNOEA [None]
  - GASTROENTERITIS VIRAL [None]
  - PANIC ATTACK [None]
  - TONGUE DISCOLOURATION [None]
